FAERS Safety Report 5572000-X (Version None)
Quarter: 2007Q4

REPORT INFORMATION
  Report Type: 
  Country: None (occurrence: None)
  Receive Date: 20071221
  Receipt Date: 20071214
  Transmission Date: 20080405
  Serious: Yes (Hospitalization)
  Sender: FDA-Public Use
  Company Number: FR-BOEHRINGER INGELHEIM PHARMACEUTICALS, INC.-2007-FF-00551FF

PATIENT
  Sex: Female
  Weight: 43 kg

DRUGS (7)
  1. VIRAMUNE [Suspect]
     Route: 048
     Dates: start: 20070305
  2. VIRAMUNE [Suspect]
     Route: 048
     Dates: end: 20070329
  3. BACTRIM [Concomitant]
     Route: 048
     Dates: start: 20070208
  4. MYAMBUTOL [Concomitant]
     Route: 048
     Dates: start: 20070209
  5. TRUVADA [Concomitant]
     Route: 048
     Dates: start: 20070208
  6. KALETRA [Concomitant]
     Route: 048
     Dates: start: 20070208, end: 20070305
  7. RIFATER [Concomitant]
     Route: 048
     Dates: start: 20070209

REACTIONS (6)
  - ALANINE AMINOTRANSFERASE INCREASED [None]
  - ASPARTATE AMINOTRANSFERASE INCREASED [None]
  - BLOOD ALKALINE PHOSPHATASE INCREASED [None]
  - BLOOD BILIRUBIN INCREASED [None]
  - BLOOD LACTATE DEHYDROGENASE INCREASED [None]
  - GAMMA-GLUTAMYLTRANSFERASE INCREASED [None]
